FAERS Safety Report 17475455 (Version 2)
Quarter: 2020Q1

REPORT INFORMATION
  Report Type: Spontaneous
  Country: US (occurrence: US)
  Receive Date: 20200228
  Receipt Date: 20200305
  Transmission Date: 20200409
  Serious: No
  Sender: FDA-Public Use
  Company Number: US-PFIZER INC-2020087842

PATIENT
  Age: 26 Year
  Sex: Female

DRUGS (1)
  1. BOSULIF [Suspect]
     Active Substance: BOSUTINIB MONOHYDRATE
     Indication: CHRONIC MYELOID LEUKAEMIA
     Dosage: UNK

REACTIONS (6)
  - Memory impairment [Unknown]
  - Diarrhoea [Unknown]
  - Hypertension [Unknown]
  - Malaise [Unknown]
  - Pain in extremity [Unknown]
  - Nausea [Unknown]
